FAERS Safety Report 4955269-1 (Version None)
Quarter: 2006Q1

REPORT INFORMATION
  Report Type: 
  Country: None (occurrence: None)
  Receive Date: 20060328
  Receipt Date: 20060322
  Transmission Date: 20060701
  Serious: Yes (Hospitalization)
  Sender: FDA-Public Use
  Company Number: 2006AP01442

PATIENT
  Age: 76 Year
  Sex: Female

DRUGS (7)
  1. TENORMIN [Suspect]
     Indication: RENAL FAILURE CHRONIC
     Route: 048
     Dates: end: 20060318
  2. SOLANEX [Suspect]
     Route: 048
     Dates: end: 20060318
  3. PERSANTIN-L [Suspect]
     Route: 048
     Dates: end: 20060318
  4. KAYEXALATE [Suspect]
     Route: 048
     Dates: end: 20060318
  5. ZYLORIC [Suspect]
     Route: 048
     Dates: end: 20060318
  6. ADALAT [Concomitant]
     Route: 048
  7. LASIX [Concomitant]

REACTIONS (2)
  - APATHY [None]
  - SOMNOLENCE [None]
